FAERS Safety Report 8811851 (Version 1)
Quarter: 2012Q4

REPORT INFORMATION
  Report Type: 
  Country: CN (occurrence: CN)
  Receive Date: 20120927
  Receipt Date: 20120927
  Transmission Date: 20130627
  Serious: Yes (Other)
  Sender: FDA-Public Use
  Company Number: CN-VIIV HEALTHCARE LIMITED-B0832972A

PATIENT
  Age: 28 Year
  Sex: Female
  Weight: 45 kg

DRUGS (3)
  1. LAMIVUDINE-HIV [Suspect]
     Indication: ACQUIRED IMMUNODEFICIENCY SYNDROME
     Dosage: 300MG Per day
     Route: 048
     Dates: start: 20100518, end: 20100719
  2. ZIDOVUDINE [Concomitant]
     Dosage: 300MG Twice per day
     Route: 048
     Dates: start: 20100518
  3. NEVIRAPINE [Concomitant]
     Dosage: 200MG Twice per day
     Route: 048
     Dates: start: 20100518

REACTIONS (5)
  - Bone marrow failure [Recovering/Resolving]
  - Haemoglobin decreased [Recovering/Resolving]
  - Platelet count decreased [Recovering/Resolving]
  - Red blood cell count decreased [Recovering/Resolving]
  - White blood cell count decreased [Recovering/Resolving]
